FAERS Safety Report 10308551 (Version 3)
Quarter: 2014Q4

REPORT INFORMATION
  Report Type: Spontaneous
  Country: US (occurrence: US)
  Receive Date: 20140716
  Receipt Date: 20141117
  Transmission Date: 20150528
  Serious: Yes (Hospitalization, Other)
  Sender: FDA-Public Use
  Company Number: US-GLAXOSMITHKLINE-A1080203A

PATIENT
  Sex: Female

DRUGS (9)
  1. ISOSORBIDE MONONITRATE. [Concomitant]
     Active Substance: ISOSORBIDE MONONITRATE
  2. FLUTICASONE NASAL SPRAY [Concomitant]
     Active Substance: FLUTICASONE\FLUTICASONE PROPIONATE
  3. NITROGLYCERIN. [Concomitant]
     Active Substance: NITROGLYCERIN
  4. ADVAIR HFA [Suspect]
     Active Substance: FLUTICASONE PROPIONATE\SALMETEROL XINAFOATE
     Indication: DYSPNOEA
     Dosage: 1 DF, BID
     Dates: start: 1998
  5. RANEXA [Concomitant]
     Active Substance: RANOLAZINE
  6. LISINOPRIL. [Concomitant]
     Active Substance: LISINOPRIL
  7. ATORVASTATIN [Concomitant]
     Active Substance: ATORVASTATIN
  8. TIKOSYN [Concomitant]
     Active Substance: DOFETILIDE
  9. WARFARIN [Concomitant]
     Active Substance: WARFARIN

REACTIONS (9)
  - Cardiac disorder [Unknown]
  - Arterial occlusive disease [Unknown]
  - Pneumonia [Unknown]
  - Angina pectoris [Not Recovered/Not Resolved]
  - Arrhythmia [Not Recovered/Not Resolved]
  - Sinus disorder [Unknown]
  - Asthma [Unknown]
  - Catheterisation cardiac [Unknown]
  - Dyspnoea [Unknown]

NARRATIVE: CASE EVENT DATE: 1998
